FAERS Safety Report 9258530 (Version 2)
Quarter: 2013Q2

REPORT INFORMATION
  Report Type: Spontaneous
  Country: US (occurrence: US)
  Receive Date: 20130426
  Receipt Date: 20130509
  Transmission Date: 20140414
  Serious: Yes (Hospitalization)
  Sender: FDA-Public Use
  Company Number: US-BAXTER-2013BAX014412

PATIENT
  Age: 60 Year
  Sex: Male

DRUGS (7)
  1. DIANEAL LOW CALCIUM [Suspect]
     Indication: PERITONEAL DIALYSIS
     Route: 033
     Dates: start: 201303, end: 20130404
  2. DIANEAL LOW CALCIUM [Suspect]
     Route: 033
     Dates: start: 201303, end: 20130404
  3. DIANEAL LOW CALCIUM [Suspect]
     Indication: PERITONEAL DIALYSIS
     Route: 033
     Dates: start: 201303, end: 20130404
  4. DIANEAL LOW CALCIUM [Suspect]
     Route: 033
     Dates: start: 201303, end: 20130404
  5. DIANEAL LOW CALCIUM [Suspect]
     Indication: PERITONEAL DIALYSIS
     Route: 033
     Dates: start: 201303, end: 20130404
  6. DIANEAL LOW CALCIUM [Suspect]
     Route: 033
     Dates: start: 201303, end: 20130404
  7. DIANEAL LOW CALCIUM (ULTRABAG) [Suspect]
     Indication: PERITONEAL DIALYSIS
     Route: 033
     Dates: start: 201209, end: 201303

REACTIONS (1)
  - Cholelithiasis [Recovered/Resolved]
